FAERS Safety Report 14792724 (Version 1)
Quarter: 2018Q2

REPORT INFORMATION
  Report Type: Spontaneous
  Country: JP (occurrence: JP)
  Receive Date: 20180423
  Receipt Date: 20180423
  Transmission Date: 20180711
  Serious: Yes (Other)
  Sender: FDA-Public Use
  Company Number: JP-BAYER-2018-077745

PATIENT
  Age: 72 Year
  Sex: Female

DRUGS (17)
  1. BIOFERMIN R [Concomitant]
     Active Substance: BACILLUS SUBTILIS\LACTOBACILLUS ACIDOPHILUS\STREPTOCOCCUS FAECAIS
  2. THYRADIN S [Concomitant]
     Active Substance: LEVOTHYROXINE SODIUM
  3. ADALAT-L 10 MG [Concomitant]
  4. CLOPIDOGREL [Suspect]
     Active Substance: CLOPIDOGREL BISULFATE
     Indication: CARDIAC OPERATION
     Dosage: DAILY DOSE 75 MG
     Route: 048
     Dates: start: 20180318, end: 20180319
  5. TRAZENTA [Concomitant]
     Active Substance: LINAGLIPTIN
  6. CLOPIDOGREL [Suspect]
     Active Substance: CLOPIDOGREL BISULFATE
     Indication: CARDIAC OPERATION
     Dosage: UNK
     Route: 048
     Dates: start: 20180411
  7. POLYFUL [Concomitant]
     Active Substance: CALCIUM POLYCARBOPHIL
  8. METHYCOBAL [Concomitant]
     Active Substance: METHYLCOBALAMIN
  9. ACTOS [Concomitant]
     Active Substance: PIOGLITAZONE HYDROCHLORIDE
  10. MIGLITOL. [Concomitant]
     Active Substance: MIGLITOL
  11. CLARITIN [Concomitant]
     Active Substance: LORATADINE
  12. DEPAKENE [Concomitant]
     Active Substance: VALPROIC ACID
  13. TRAMAL [Concomitant]
     Active Substance: TRAMADOL
  14. BAYASPIRIN 100 MG [Suspect]
     Active Substance: ASPIRIN
     Indication: CARDIAC OPERATION
     Dosage: DAILY DOSE 100 MG
     Route: 048
     Dates: start: 20180318, end: 20180319
  15. BAYASPIRIN 100 MG [Suspect]
     Active Substance: ASPIRIN
     Indication: CARDIAC OPERATION
     Dosage: UNK
     Route: 048
     Dates: start: 201803
  16. MICARDIS [Concomitant]
     Active Substance: TELMISARTAN
  17. BUSCOPAN [Concomitant]
     Active Substance: BUTYLSCOPOLAMINE BROMIDE

REACTIONS (3)
  - Gastric ulcer [Unknown]
  - Duodenal ulcer [Unknown]
  - Abdominal pain [Unknown]

NARRATIVE: CASE EVENT DATE: 20180319
